FAERS Safety Report 16251482 (Version 1)
Quarter: 2019Q2

REPORT INFORMATION
  Report Type: Spontaneous
  Country: US (occurrence: US)
  Receive Date: 20190429
  Receipt Date: 20190429
  Transmission Date: 20190711
  Serious: No
  Sender: FDA-Public Use
  Company Number: US-AMGEN-USASP2019064577

PATIENT
  Sex: Female

DRUGS (1)
  1. PROLIA [Suspect]
     Active Substance: DENOSUMAB
     Indication: PRODUCT USED FOR UNKNOWN INDICATION
     Dosage: 60 MILLIGRAM
     Route: 065
     Dates: start: 2018

REACTIONS (6)
  - Gingival disorder [Unknown]
  - Toothache [Not Recovered/Not Resolved]
  - Tooth extraction [Unknown]
  - Myalgia [Unknown]
  - Impaired healing [Unknown]
  - Jaw disorder [Unknown]

NARRATIVE: CASE EVENT DATE: 2018
